FAERS Safety Report 24781332 (Version 1)
Quarter: 2024Q4

REPORT INFORMATION
  Report Type: Spontaneous
  Country: ES (occurrence: ES)
  Receive Date: 20241227
  Receipt Date: 20241227
  Transmission Date: 20250115
  Serious: Yes (Hospitalization, Other)
  Sender: NOVITIUM PHARMA
  Company Number: ES-NOVITIUMPHARMA-2024ESNVP02984

PATIENT
  Age: 58 Year
  Sex: Female

DRUGS (6)
  1. PREDNISONE [Suspect]
     Active Substance: PREDNISONE
     Indication: Systemic scleroderma
  2. PREDNISONE [Suspect]
     Active Substance: PREDNISONE
  3. DEXAMETHASONE [Suspect]
     Active Substance: DEXAMETHASONE
     Indication: COVID-19
  4. CEFDITOREN [Concomitant]
     Active Substance: CEFDITOREN
     Indication: Organising pneumonia
  5. RITUXIMAB [Concomitant]
     Active Substance: RITUXIMAB
     Indication: Systemic scleroderma
     Dates: start: 202305
  6. REMDESIVIR [Concomitant]
     Active Substance: REMDESIVIR

REACTIONS (4)
  - Post-acute COVID-19 syndrome [Recovering/Resolving]
  - Organising pneumonia [Unknown]
  - Respiratory failure [Unknown]
  - Off label use [Unknown]
